FAERS Safety Report 21332904 (Version 1)
Quarter: 2022Q3

REPORT INFORMATION
  Report Type: Spontaneous
  Country: US (occurrence: None)
  Receive Date: 20220913
  Receipt Date: 20220913
  Transmission Date: 20221027
  Serious: Yes (Hospitalization)
  Sender: FDA-Public Use
  Company Number: None

PATIENT
  Age: 6 Year
  Sex: Male
  Weight: 22.05 kg

DRUGS (4)
  1. AZELASTINE HYDROCHLORIDE [Suspect]
     Active Substance: AZELASTINE HYDROCHLORIDE
     Indication: Seasonal allergy
     Dosage: OTHER STRENGTH : MCG;?OTHER QUANTITY : 200 SPRAY(S);?FREQUENCY : TWICE A DAY;?
     Route: 055
     Dates: start: 20220911, end: 20220911
  2. ZYRTEC [Concomitant]
     Active Substance: CETIRIZINE HYDROCHLORIDE
  3. FLONASE [Concomitant]
     Active Substance: FLUTICASONE PROPIONATE
  4. VITAMINS [Concomitant]
     Active Substance: VITAMINS

REACTIONS (6)
  - Dyspnoea [None]
  - Vomiting [None]
  - Headache [None]
  - Oropharyngeal pain [None]
  - Sneezing [None]
  - Cough [None]

NARRATIVE: CASE EVENT DATE: 20220911
